FAERS Safety Report 5407692-9 (Version None)
Quarter: 2007Q3

REPORT INFORMATION
  Report Type: 
  Country: None (occurrence: None)
  Receive Date: 20070803
  Receipt Date: 20070720
  Transmission Date: 20080115
  Serious: Yes (Other)
  Sender: FDA-Public Use
  Company Number: 02100-USA-07-0017

PATIENT
  Age: 74 Year
  Sex: Female

DRUGS (8)
  1. CILOSTAZOL [Suspect]
     Indication: INTERMITTENT CLAUDICATION
     Dosage: 100 MG/200 MG/50 MG ORAL
     Route: 048
     Dates: start: 20070523
  2. ENALAPRIL MALEATE [Concomitant]
  3. ATENOLOL [Concomitant]
  4. ATORVASTATIN CALCIUM [Concomitant]
  5. ACETYLSALICYLIC ACID SRT [Concomitant]
  6. MULTIVITAMIN [Concomitant]
  7. CALCIUM CHLORIDE [Concomitant]
  8. RABEPRAZOLE SODIUM [Concomitant]

REACTIONS (7)
  - ATRIAL FIBRILLATION [None]
  - DRUG INTERACTION [None]
  - ERYTHEMA [None]
  - PAIN IN EXTREMITY [None]
  - PALPITATIONS [None]
  - PHARYNGEAL OEDEMA [None]
  - SKIN DISCOLOURATION [None]
